FAERS Safety Report 7426327-7 (Version None)
Quarter: 2011Q2

REPORT INFORMATION
  Report Type: 
  Country: None (occurrence: None)
  Receive Date: 20110420
  Receipt Date: 20110414
  Transmission Date: 20111010
  Serious: Yes (Hospitalization)
  Sender: FDA-Public Use
  Company Number: B0713063A

PATIENT
  Sex: Female

DRUGS (4)
  1. ZANTAC [Suspect]
     Indication: PREMEDICATION
     Dosage: 50MG SINGLE DOSE
     Route: 042
     Dates: start: 20110217, end: 20110217
  2. SOLU-MEDROL [Suspect]
     Indication: PREMEDICATION
     Dosage: 80MG SINGLE DOSE
     Route: 042
     Dates: start: 20110217, end: 20110217
  3. POLARAMINE [Suspect]
     Indication: PREMEDICATION
     Dosage: 2MG SINGLE DOSE
     Route: 048
     Dates: start: 20110217, end: 20110217
  4. PACLITAXEL [Suspect]
     Indication: BREAST CANCER
     Dosage: 112MG PER DAY
     Route: 042
     Dates: start: 20110217, end: 20110217

REACTIONS (3)
  - CARDIAC ARREST [None]
  - BLOOD PRESSURE INCREASED [None]
  - SYNCOPE [None]
